FAERS Safety Report 26105221 (Version 1)
Quarter: 2025Q4

REPORT INFORMATION
  Report Type: Report from Study
  Country: US (occurrence: US)
  Receive Date: 20251201
  Receipt Date: 20251201
  Transmission Date: 20260117
  Serious: Yes (Other)
  Sender: ACADIA PHARMACEUTICALS
  Company Number: US-ACADIA PHARMACEUTICALS INC.-ACA-2025-PIM-012690

PATIENT
  Sex: Male

DRUGS (2)
  1. NUPLAZID [Suspect]
     Active Substance: PIMAVANSERIN TARTRATE
     Indication: Product used for unknown indication
     Dosage: 34 MILLIGRAM
     Route: 065
  2. SEROQUEL [Suspect]
     Active Substance: QUETIAPINE FUMARATE
     Indication: Product used for unknown indication

REACTIONS (3)
  - Psychotic disorder [Recovering/Resolving]
  - Condition aggravated [Recovering/Resolving]
  - Sleep disorder [Recovering/Resolving]
